FAERS Safety Report 7498811-1 (Version None)
Quarter: 2011Q2

REPORT INFORMATION
  Report Type: 
  Country: None (occurrence: None)
  Receive Date: 20110524
  Receipt Date: 20110510
  Transmission Date: 20111010
  Serious: Yes (Other)
  Sender: FDA-Public Use
  Company Number: DE-RANBAXY-2011R1-44351

PATIENT

DRUGS (1)
  1. AMOXICILLIN [Suspect]
     Indication: ANTIBIOTIC PROPHYLAXIS
     Dosage: 1000 MG, TID
     Route: 048
     Dates: start: 20110301

REACTIONS (1)
  - RASH GENERALISED [None]
